FAERS Safety Report 5331280-6 (Version None)
Quarter: 2007Q2

REPORT INFORMATION
  Report Type: 
  Country: None (occurrence: None)
  Receive Date: 20070522
  Receipt Date: 20070511
  Transmission Date: 20071010
  Serious: Yes (Hospitalization)
  Sender: FDA-Public Use
  Company Number: SE-JNJFOC-20070503550

PATIENT
  Age: 72 Year
  Sex: Female

DRUGS (4)
  1. REMICADE [Suspect]
     Route: 042
  2. REMICADE [Suspect]
     Indication: WEGENER'S GRANULOMATOSIS
     Route: 042
  3. SENDOXAN [Suspect]
     Indication: WEGENER'S GRANULOMATOSIS
     Route: 050
  4. ACETAMINOPHEN [Concomitant]

REACTIONS (1)
  - RESPIRATORY MONILIASIS [None]
